FAERS Safety Report 5061289-1 (Version None)
Quarter: 2006Q3

REPORT INFORMATION
  Report Type: 
  Country: None (occurrence: None)
  Receive Date: 20060721
  Receipt Date: 20060721
  Transmission Date: 20061208
  Serious: Yes (Hospitalization)
  Sender: FDA-Public Use
  Company Number: None

PATIENT
  Age: 74 Year
  Sex: Female

DRUGS (2)
  1. CEFEPIME [Suspect]
     Indication: LUNG INFECTION PSEUDOMONAL
     Dosage: 1 G Q 12 HOURS  IV
     Route: 042
     Dates: start: 20051101
  2. CEFEPIME [Suspect]
     Indication: PATHOGEN RESISTANCE
     Dosage: 1 G Q 12 HOURS  IV
     Route: 042
     Dates: start: 20051101

REACTIONS (3)
  - CHILLS [None]
  - PYREXIA [None]
  - WHITE BLOOD CELL COUNT DECREASED [None]
